FAERS Safety Report 25002470 (Version 1)
Quarter: 2025Q1

REPORT INFORMATION
  Report Type: Report from Study
  Country: US (occurrence: None)
  Receive Date: 20250224
  Receipt Date: 20250224
  Transmission Date: 20250409
  Serious: Yes (Death, Other)
  Sender: NODEN PHARMA
  Company Number: US-Noden Pharma DAC-NOD202502-000018

PATIENT
  Age: 10 Month

DRUGS (3)
  1. COCAINE HYDROCHLORIDE [Suspect]
     Active Substance: COCAINE HYDROCHLORIDE
     Indication: Product used for unknown indication
     Route: 048
  2. FENTANYL [Suspect]
     Active Substance: FENTANYL
     Indication: Product used for unknown indication
     Route: 048
  3. XYLAZINE [Suspect]
     Active Substance: XYLAZINE
     Indication: Product used for unknown indication
     Route: 048

REACTIONS (2)
  - Death [Fatal]
  - Product use issue [Unknown]
